FAERS Safety Report 23934309 (Version 1)
Quarter: 2024Q2

REPORT INFORMATION
  Report Type: Spontaneous
  Country: IT (occurrence: IT)
  Receive Date: 20240603
  Receipt Date: 20240603
  Transmission Date: 20240716
  Serious: Yes (Other)
  Sender: FDA-Public Use
  Company Number: None

PATIENT
  Age: 72 Year
  Sex: Male

DRUGS (3)
  1. FLUOROURACIL [Suspect]
     Active Substance: FLUOROURACIL
     Indication: Product used for unknown indication
     Dosage: SC 12/31/2025, LOT 24A13LA SC 01/31/2026, FLUOROURACIL TEVA
     Route: 042
     Dates: start: 20240429, end: 20240513
  2. BEVACIZUMAB [Suspect]
     Active Substance: BEVACIZUMAB
     Indication: Product used for unknown indication
     Dosage: SC. 31/10/2025, LOT BF2300257I SC. 30/06/2025
     Route: 042
     Dates: start: 20240429, end: 20240513
  3. OXALIPLATIN [Suspect]
     Active Substance: OXALIPLATIN
     Indication: Product used for unknown indication
     Dosage: SC31/10/2024, LOT HAE0986A SC 31/11/2024
     Route: 042
     Dates: start: 20240429, end: 20240513

REACTIONS (3)
  - Diarrhoea [Not Recovered/Not Resolved]
  - Nausea [Recovering/Resolving]
  - Vomiting [Recovering/Resolving]

NARRATIVE: CASE EVENT DATE: 20240429
